FAERS Safety Report 5780225-3 (Version None)
Quarter: 2008Q2

REPORT INFORMATION
  Report Type: 
  Country: None (occurrence: None)
  Receive Date: 20080620
  Receipt Date: 20080610
  Transmission Date: 20081010
  Serious: Yes (Other)
  Sender: FDA-Public Use
  Company Number: PHHY2008DE10525

PATIENT
  Sex: Male

DRUGS (4)
  1. SANDIMMUNE [Suspect]
     Indication: LUNG TRANSPLANT
     Dosage: 300 MG DAILY
     Route: 048
     Dates: start: 20030101
  2. DELIX [Interacting]
     Indication: HYPERTENSION
     Dosage: 5 MG DAILY
     Dates: start: 20080420, end: 20080509
  3. IMUREK [Concomitant]
     Indication: LUNG TRANSPLANT
     Dosage: 100 MG DAILY
     Route: 048
     Dates: start: 20030101
  4. COTRIM [Concomitant]
     Indication: PNEUMOCYSTIS JIROVECI PNEUMONIA
     Dosage: 960 MG TID
     Route: 048

REACTIONS (4)
  - DRUG INTERACTION [None]
  - HAEMOGLOBIN DECREASED [None]
  - NORMOCHROMIC NORMOCYTIC ANAEMIA [None]
  - RETICULOCYTOPENIA [None]
